FAERS Safety Report 18898784 (Version 1)
Quarter: 2021Q1

REPORT INFORMATION
  Report Type: Spontaneous
  Country: US (occurrence: US)
  Receive Date: 20210215
  Receipt Date: 20210215
  Transmission Date: 20210420
  Serious: Yes (Other)
  Sender: FDA-Public Use
  Company Number: None

PATIENT
  Age: 40 Year
  Sex: Female
  Weight: 49.1 kg

DRUGS (1)
  1. TISAGENLECLEUCEL. [Suspect]
     Active Substance: TISAGENLECLEUCEL
     Indication: DIFFUSE LARGE B-CELL LYMPHOMA
     Dosage: ?          OTHER FREQUENCY:ONCE;?
     Route: 042
     Dates: start: 20201113, end: 20201113

REACTIONS (7)
  - Febrile neutropenia [None]
  - Spinal disorder [None]
  - Dysmenorrhoea [None]
  - Lymphoma [None]
  - Pain [None]
  - Cytokine release syndrome [None]
  - Menstruation normal [None]

NARRATIVE: CASE EVENT DATE: 20201115
